FAERS Safety Report 7486999-8 (Version None)
Quarter: 2011Q2

REPORT INFORMATION
  Report Type: 
  Country: None (occurrence: None)
  Receive Date: 20110518
  Receipt Date: 20110504
  Transmission Date: 20111010
  Serious: Yes (Hospitalization)
  Sender: FDA-Public Use
  Company Number: GB-MYLANLABS-2011S1009203

PATIENT
  Age: 6 Hour

DRUGS (1)
  1. FLUOXETINE [Suspect]
     Route: 064

REACTIONS (10)
  - DYSKINESIA [None]
  - IRRITABILITY [None]
  - MUSCLE SPASTICITY [None]
  - NEUROLOGICAL SYMPTOM [None]
  - DRUG EXPOSURE DURING PREGNANCY [None]
  - FEELING JITTERY [None]
  - POSTURE ABNORMAL [None]
  - RESPIRATORY DISORDER [None]
  - HYPERTONIA [None]
  - OXYGEN SATURATION DECREASED [None]
